FAERS Safety Report 8936015 (Version 1)
Quarter: 2012Q4

REPORT INFORMATION
  Report Type: 
  Country: US (occurrence: US)
  Receive Date: 20121130
  Receipt Date: 20121130
  Transmission Date: 20130627
  Serious: No
  Sender: FDA-Public Use
  Company Number: US-009507513-1211USA012106

PATIENT
  Age: 71 Year
  Sex: Female

DRUGS (1)
  1. CORRECTOL NOS [Suspect]
     Indication: CONSTIPATION
     Dosage: UNK, Unknown
     Route: 048

REACTIONS (1)
  - Therapeutic response decreased [Unknown]
